FAERS Safety Report 14241305 (Version 2)
Quarter: 2017Q4

REPORT INFORMATION
  Report Type: Report from Study
  Country: CO (occurrence: CO)
  Receive Date: 20171130
  Receipt Date: 20171219
  Transmission Date: 20180321
  Serious: Yes (Hospitalization, Other)
  Sender: FDA-Public Use
  Company Number: CO-AMGEN-COLSL2017177149

PATIENT
  Sex: Female

DRUGS (1)
  1. KYPROLIS [Suspect]
     Active Substance: CARFILZOMIB
     Indication: PLASMA CELL MYELOMA
     Dosage: UNK
     Route: 065

REACTIONS (7)
  - Renal impairment [Unknown]
  - Feeling abnormal [Unknown]
  - Malaise [Unknown]
  - Vomiting [Unknown]
  - Varicella [Unknown]
  - Pneumonia [Unknown]
  - Nausea [Unknown]
